FAERS Safety Report 19245610 (Version 6)
Quarter: 2021Q3

REPORT INFORMATION
  Report Type: Report from Study
  Country: KR (occurrence: KR)
  Receive Date: 20210512
  Receipt Date: 20210723
  Transmission Date: 20211014
  Serious: Yes (Hospitalization, Other)
  Sender: FDA-Public Use
  Company Number: KR-CELLTRION INC.-2021KR004111

PATIENT

DRUGS (35)
  1. HERZUMA [Suspect]
     Active Substance: TRASTUZUMAB-PKRB
     Dosage: 209.2 MG (STRENGTH: 440 MG)
     Route: 042
     Dates: start: 20210430
  2. TABACTAM [Concomitant]
     Active Substance: PIPERACILLIN SODIUM\TAZOBACTAM SODIUM
     Indication: INFECTION PROPHYLAXIS
     Dosage: 1 VIAL
     Route: 042
     Dates: start: 20210325
  3. OXALIPLATIN. [Suspect]
     Active Substance: OXALIPLATIN
     Dosage: 130 MG (STRENGTH: 150MG/30ML)
     Route: 042
     Dates: start: 20210309
  4. OXALIPLATIN. [Suspect]
     Active Substance: OXALIPLATIN
     Dosage: 99.4 MG (STRENGTH: 150MG/30ML)
     Route: 042
     Dates: start: 20210430
  5. MORPHINE SULFATE. [Concomitant]
     Active Substance: MORPHINE SULFATE
     Indication: ABDOMINAL PAIN
     Dosage: 1 AMP, ONCE
     Route: 042
     Dates: start: 20210317, end: 20210317
  6. IRCODON [Concomitant]
     Active Substance: OXYCODONE HYDROCHLORIDE
     Indication: ABDOMINAL PAIN
     Dosage: 10 MG, PRN
     Route: 048
     Dates: start: 20210303
  7. OXALIPLATIN. [Suspect]
     Active Substance: OXALIPLATIN
     Indication: PRODUCT USED FOR UNKNOWN INDICATION
     Dosage: 99.4 MG (STRENGTH: 150MG/30ML)
     Route: 042
     Dates: start: 20210323, end: 20210323
  8. OXALITIN [Suspect]
     Active Substance: OXALIPLATIN
     Indication: PRODUCT USED FOR UNKNOWN INDICATION
     Dosage: 130 MG (STRENGTH: 150 MG/30 ML)
     Route: 042
     Dates: start: 20210309
  9. FERBON [Suspect]
     Active Substance: LEUCOVORIN CALCIUM
     Indication: PRODUCT USED FOR UNKNOWN INDICATION
     Dosage: 306 MG (STRENGTH: 300MG/30ML)
     Route: 042
     Dates: start: 20210309
  10. FERBON [Suspect]
     Active Substance: LEUCOVORIN CALCIUM
     Dosage: 306 MG (STRENGTH: 300MG/30ML)
     Route: 042
     Dates: start: 20210430
  11. 5% DEXTROSE IN WATER [Concomitant]
     Dosage: 1000 ML
     Dates: start: 20210323
  12. MACPERAN [Concomitant]
     Active Substance: METOCLOPRAMIDE HYDROCHLORIDE
     Indication: PROPHYLAXIS OF NAUSEA AND VOMITING
     Dosage: 2 DOSAGE FORM, PRN
     Route: 048
     Dates: start: 20210311
  13. DEXAMETHASONE. [Concomitant]
     Active Substance: DEXAMETHASONE
     Indication: CHEMOTHERAPY SIDE EFFECT PROPHYLAXIS
     Dosage: STRENGTH: 5MG/1ML
     Route: 042
     Dates: start: 20210323
  14. LIVALO [Concomitant]
     Active Substance: PITAVASTATIN CALCIUM
     Indication: DYSLIPIDAEMIA
     Dosage: (2MG) 0.5 TAB
     Route: 048
     Dates: start: 20210323
  15. 5 FU [Suspect]
     Active Substance: FLUOROURACIL
     Dosage: STRENGTH: 1000MG/20ML
     Route: 042
     Dates: start: 20210430
  16. 5% DEXTROSE IN WATER [Concomitant]
     Dosage: 100 ML
     Dates: start: 20210323
  17. ALOXI [Concomitant]
     Active Substance: PALONOSETRON HYDROCHLORIDE
     Indication: CHEMOTHERAPY SIDE EFFECT PROPHYLAXIS
     Dosage: STRENTH: 0.25MG/5ML; 1 VIAL
     Route: 042
     Dates: start: 20210323
  18. 5 FU [Suspect]
     Active Substance: FLUOROURACIL
     Indication: PRODUCT USED FOR UNKNOWN INDICATION
     Dosage: 3672 MG (STRENGTH: 1000MG/20ML)
     Route: 042
     Dates: start: 20210309
  19. FERBON [Suspect]
     Active Substance: LEUCOVORIN CALCIUM
     Dosage: 306 MG (STRENGTH: 300MG/30ML)
     Route: 042
     Dates: start: 20210323, end: 20210323
  20. FERBON [Suspect]
     Active Substance: LEUCOVORIN CALCIUM
     Dosage: 306 MG (STRENGTH: 300MG/30ML)
     Route: 042
     Dates: start: 20210623
  21. TARGIN PR [Concomitant]
     Indication: ABDOMINAL PAIN
     Dosage: STRENGTH: 20MG+10MG
     Route: 048
     Dates: start: 20210303
  22. HERZUMA [Suspect]
     Active Substance: TRASTUZUMAB-PKRB
     Indication: CHOLANGIOCARCINOMA
     Dosage: UNK
     Route: 042
     Dates: start: 20210309
  23. OXALITIN [Suspect]
     Active Substance: OXALIPLATIN
     Dosage: 99.4 MG (STRENGTH: 150 MG/30 ML)
     Route: 042
     Dates: start: 20210623
  24. PACKED RBC [Concomitant]
     Indication: ANAEMIA
     Dosage: 400 ML, ONCE
     Route: 042
     Dates: start: 20210707, end: 20210707
  25. HERZUMA [Suspect]
     Active Substance: TRASTUZUMAB-PKRB
     Dosage: 313.8 MG (STRENGTH: 440 MG)
     Route: 042
     Dates: start: 20210309
  26. 5 FU [Suspect]
     Active Substance: FLUOROURACIL
     Dosage: STRENGTH: 1000MG/20ML
     Route: 042
     Dates: start: 20210623
  27. DUPHALAC EASY [Concomitant]
     Active Substance: LACTULOSE
     Indication: CONSTIPATION
     Dosage: 1 PACK, BID
     Route: 048
     Dates: start: 20210303
  28. NASEA [Concomitant]
     Active Substance: RAMOSETRON HYDROCHLORIDE
     Indication: PROPHYLAXIS OF NAUSEA AND VOMITING
     Dosage: 1 DOSAGE FORM
     Route: 048
     Dates: start: 20210311
  29. HERZUMA [Suspect]
     Active Substance: TRASTUZUMAB-PKRB
     Dosage: 209.2 MG, CYCLIC (CYCLE 2 CHEMOTHERAPY FOR WEIGHT OF 52.3 KG)
     Route: 042
     Dates: start: 20210323, end: 20210323
  30. HERZUMA [Suspect]
     Active Substance: TRASTUZUMAB-PKRB
     Dosage: 209.2 MG (STRENGTH: 440 MG)
     Route: 042
     Dates: start: 20210623
  31. 5 FU [Suspect]
     Active Substance: FLUOROURACIL
     Dosage: 612 MG (STRENGTH: 500MG/10ML)
     Route: 042
     Dates: start: 20210309
  32. 5 FU [Suspect]
     Active Substance: FLUOROURACIL
     Dosage: 2907 MG (STRENGTH: 1000MG/20ML)
     Route: 042
     Dates: start: 20210323
  33. 5% DEXTROSE IN WATER [Concomitant]
     Dosage: 200 ML
     Dates: start: 20210323
  34. GLIATAMIN [Concomitant]
     Active Substance: CHOLINE ALFOSCERATE
     Indication: COGNITIVE DISORDER
     Dosage: (400 MG)1 DOSAGE FORM, BID
     Route: 048
     Dates: start: 20210303
  35. TANTUM [BENZYDAMINE HYDROCHLORIDE] [Concomitant]
     Indication: PROPHYLAXIS
     Dosage: STRENGTH: 1.5 MG/ML, 100ML (2BOT)
     Route: 048
     Dates: start: 20210311

REACTIONS (8)
  - Biloma [Recovered/Resolved]
  - Pyrexia [Recovered/Resolved]
  - Off label use [Unknown]
  - Hypokalaemia [Recovering/Resolving]
  - Hypoalbuminaemia [Recovering/Resolving]
  - Abdominal pain [Recovering/Resolving]
  - Decreased appetite [Recovering/Resolving]
  - Fatigue [Recovering/Resolving]

NARRATIVE: CASE EVENT DATE: 20210317
